FAERS Safety Report 22349925 (Version 2)
Quarter: 2023Q2

REPORT INFORMATION
  Report Type: Spontaneous
  Country: JP (occurrence: JP)
  Receive Date: 20230522
  Receipt Date: 20230525
  Transmission Date: 20230721
  Serious: Yes (Life-Threatening, Hospitalization, Other)
  Sender: FDA-Public Use
  Company Number: JP-PFIZER INC-PV202300089340

PATIENT
  Age: 69 Year
  Sex: Male

DRUGS (1)
  1. PENICILLIN G BENZATHINE [Suspect]
     Active Substance: PENICILLIN G BENZATHINE
     Indication: Syphilis
     Dosage: DOSE 3, 2400000 IU, SINGLE
     Dates: start: 20230518, end: 20230518

REACTIONS (4)
  - Anaphylactic shock [Recovering/Resolving]
  - Loss of consciousness [Recovering/Resolving]
  - Tonic convulsion [Recovering/Resolving]
  - Unresponsive to stimuli [Unknown]

NARRATIVE: CASE EVENT DATE: 20230518
